FAERS Safety Report 13505823 (Version 3)
Quarter: 2017Q4

REPORT INFORMATION
  Report Type: Spontaneous
  Country: US (occurrence: US)
  Receive Date: 20170502
  Receipt Date: 20171110
  Transmission Date: 20180320
  Serious: Yes (Other)
  Sender: FDA-Public Use
  Company Number: US-BAUSCH-BL-2017-011320

PATIENT
  Sex: Male
  Weight: 86.26 kg

DRUGS (4)
  1. CAVERJECT [Suspect]
     Active Substance: ALPROSTADIL
     Indication: ERECTILE DYSFUNCTION
     Route: 065
     Dates: start: 1993
  2. CAVERJECT [Suspect]
     Active Substance: ALPROSTADIL
     Dosage: EVERY TWO TO THREE TIME A WEEK (DOSE INCREASE)
     Route: 065
  3. LATANOPROST OPHTHALMIC SOLUTION 0.005% [Suspect]
     Active Substance: LATANOPROST
     Indication: GLAUCOMA
     Dosage: IN BOTH EYES
     Route: 065
  4. LATANOPROST OPHTHALMIC SOLUTION 0.005% [Suspect]
     Active Substance: LATANOPROST
     Dosage: DOSE DECREASE
     Route: 065

REACTIONS (7)
  - Nervous system disorder [Unknown]
  - Trabeculectomy [Recovering/Resolving]
  - Visual impairment [Recovering/Resolving]
  - Eye inflammation [Unknown]
  - Intraocular pressure fluctuation [Unknown]
  - Cataract operation [Recovering/Resolving]
  - Road traffic accident [Unknown]

NARRATIVE: CASE EVENT DATE: 2016
